FAERS Safety Report 15264530 (Version 1)
Quarter: 2018Q3

REPORT INFORMATION
  Report Type: Spontaneous
  Country: MX (occurrence: MX)
  Receive Date: 20180810
  Receipt Date: 20180810
  Transmission Date: 20181010
  Serious: Yes (Other)
  Sender: FDA-Public Use
  Company Number: MX-TORRENT-00000130

PATIENT
  Age: 69 Year
  Sex: Female

DRUGS (1)
  1. PRAMIPEXOLE. [Suspect]
     Active Substance: PRAMIPEXOLE
     Indication: PARKINSON^S DISEASE
     Dosage: EXTENDED?RELEASE (0.375 MG DAILY)

REACTIONS (3)
  - Inappropriate schedule of drug administration [Unknown]
  - Incorrect drug dosage form administered [Unknown]
  - Pituitary haemorrhage [Unknown]
